FAERS Safety Report 5826882-4 (Version None)
Quarter: 2008Q3

REPORT INFORMATION
  Report Type: 
  Country: None (occurrence: None)
  Receive Date: 20080729
  Receipt Date: 20080729
  Transmission Date: 20090109
  Serious: No
  Sender: FDA-Public Use
  Company Number: None

PATIENT
  Sex: Male
  Weight: 56.8 kg

DRUGS (9)
  1. CYTARABINE [Suspect]
     Dosage: 3320 MG
  2. DEXAMETHASONE [Suspect]
     Dosage: 100 MG
  3. ETOPOSIDE [Suspect]
     Dosage: 265.6 MG
  4. IFOSFAMIDE [Suspect]
     Dosage: 6640 MG
  5. LEUCOVORIN CALCIUM [Suspect]
     Dosage: 161.5 MG
  6. MESNA [Suspect]
     Dosage: 1660 MG
  7. METHOTREXATE [Suspect]
     Dosage: 2490 MG
  8. RITUXIMAB (MOAB C2B8 ANTI CD20, CHIMERIC) [Suspect]
     Dosage: 1245 MG
  9. VINCRISTINE SULFATE [Suspect]
     Dosage: 2 MG

REACTIONS (3)
  - HYPOCALCAEMIA [None]
  - HYPOPHOSPHATAEMIA [None]
  - MALABSORPTION [None]
